FAERS Safety Report 7829153-X (Version None)
Quarter: 2011Q4

REPORT INFORMATION
  Report Type: 
  Country: None (occurrence: None)
  Receive Date: 20111020
  Receipt Date: 20111012
  Transmission Date: 20120403
  Serious: Yes (Other)
  Sender: FDA-Public Use
  Company Number: PHEH2011US06793

PATIENT
  Sex: Male

DRUGS (5)
  1. PULMICORT [Suspect]
  2. FORADIL [Suspect]
     Dosage: 1 DF, BID
     Dates: start: 20050101
  3. SPIRIVA [Concomitant]
  4. ASMANEX TWISTHALER [Suspect]
  5. REMERON [Suspect]

REACTIONS (5)
  - DYSPNOEA [None]
  - BRONCHOPULMONARY ASPERGILLOSIS [None]
  - SEASONAL ALLERGY [None]
  - SOMNOLENCE [None]
  - CONSTIPATION [None]
